FAERS Safety Report 21982281 (Version 1)
Quarter: 2023Q1

REPORT INFORMATION
  Report Type: Spontaneous
  Country: US (occurrence: US)
  Receive Date: 20230213
  Receipt Date: 20230213
  Transmission Date: 20230417
  Serious: No
  Sender: FDA-Public Use
  Company Number: US-BIOVITRUM-2023US02228

PATIENT
  Sex: Female
  Weight: 8 kg

DRUGS (6)
  1. SYNAGIS [Suspect]
     Active Substance: PALIVIZUMAB
     Indication: Premature baby
     Dates: start: 20221214
  2. TPN ELECTROLYTES [Concomitant]
     Active Substance: CALCIUM CHLORIDE\MAGNESIUM CHLORIDE\POTASSIUM CHLORIDE\SODIUM ACETATE ANHYDROUS\SODIUM CHLORIDE
     Dosage: 35-20-5 MEQ VIAL
  3. FIBER [Concomitant]
     Dosage: 3 G/12 G POWDER
  4. PROTONIX [Concomitant]
     Active Substance: PANTOPRAZOLE SODIUM
     Dosage: 40 MG GRANPKT DR
  5. EPINEPHRINE [Concomitant]
     Active Substance: EPINEPHRINE
  6. FLANDERS BUTTOCKS OINTMENT [Concomitant]

REACTIONS (1)
  - Gastrooesophageal reflux disease [Unknown]
